FAERS Safety Report 6887241-9 (Version None)
Quarter: 2010Q3

REPORT INFORMATION
  Report Type: 
  Country: None (occurrence: None)
  Receive Date: 20100730
  Receipt Date: 20100722
  Transmission Date: 20110219
  Serious: Yes (Hospitalization, Other)
  Sender: FDA-Public Use
  Company Number: IT-TEVA-242390USA

PATIENT
  Age: 33 Year
  Sex: Female

DRUGS (4)
  1. PIMOZIDE TABLETS [Suspect]
     Dosage: 28 TABLETS
     Route: 048
     Dates: start: 20100507, end: 20100507
  2. CITALOPRAM HYDROBROMIDE [Suspect]
     Dosage: 28 TABLETS
     Route: 048
     Dates: start: 20100507, end: 20100507
  3. AMISULPRIDE [Suspect]
     Dosage: 12 TABLETS
     Route: 048
     Dates: start: 20100507, end: 20100507
  4. PAROXETINE HCL [Suspect]
     Route: 048
     Dates: start: 20100507, end: 20100507

REACTIONS (2)
  - INTENTIONAL SELF-INJURY [None]
  - MULTIPLE DRUG OVERDOSE INTENTIONAL [None]
